FAERS Safety Report 15635155 (Version 2)
Quarter: 2019Q2

REPORT INFORMATION
  Report Type: Report from Study
  Country: None (occurrence: DE)
  Receive Date: 20181119
  Receipt Date: 20190520
  Transmission Date: 20190711
  Serious: Yes (Hospitalization, Other)
  Sender: FDA-Public Use
  Company Number: DE-ABBVIE-18K-062-2554389-00

PATIENT
  Age: 52 Year
  Sex: Male
  Weight: 68 kg

DRUGS (2)
  1. HUMIRA [Suspect]
     Active Substance: ADALIMUMAB
     Indication: PSORIASIS
     Route: 058
     Dates: start: 20180605
  2. METEX [Concomitant]
     Indication: PRODUCT USED FOR UNKNOWN INDICATION
     Dates: end: 20180524

REACTIONS (18)
  - Liver injury [Unknown]
  - Abdominal discomfort [Unknown]
  - Abdominal pain upper [Unknown]
  - Liver function test abnormal [Recovered/Resolved]
  - Alcohol poisoning [Unknown]
  - Gastrointestinal wall thickening [Unknown]
  - Hepatic steatosis [Unknown]
  - Gastritis [Recovered/Resolved]
  - Thrombocytopenia [Unknown]
  - General physical health deterioration [Unknown]
  - Lymphocytosis [Unknown]
  - Cirrhosis alcoholic [Unknown]
  - Steatohepatitis [Unknown]
  - Diarrhoea [Unknown]
  - Portal hypertension [Recovered/Resolved]
  - Hepatic steatosis [Recovered/Resolved]
  - Portal hypertensive gastropathy [Unknown]
  - Nausea [Unknown]

NARRATIVE: CASE EVENT DATE: 2018
